FAERS Safety Report 26171615 (Version 1)
Quarter: 2025Q4

REPORT INFORMATION
  Report Type: Spontaneous
  Country: EU (occurrence: EU)
  Receive Date: 20251217
  Receipt Date: 20251217
  Transmission Date: 20260117
  Serious: Yes (Other)
  Sender: MYLAN
  Company Number: None

PATIENT
  Age: 37 Year
  Sex: Male
  Weight: 58 kg

DRUGS (29)
  1. PACLITAXEL [Suspect]
     Active Substance: PACLITAXEL
     Indication: Lung adenocarcinoma
     Dosage: 200 MILLIGRAM/SQ. METER, TOTAL
     Dates: start: 20240215, end: 20240215
  2. PACLITAXEL [Suspect]
     Active Substance: PACLITAXEL
     Dosage: 40 MILLIGRAM/SQ. METER, TOTAL
     Dates: start: 20240315, end: 20240315
  3. PACLITAXEL [Suspect]
     Active Substance: PACLITAXEL
     Dosage: 40 MILLIGRAM/SQ. METER, TOTAL
     Dates: start: 20240321, end: 20240321
  4. PACLITAXEL [Suspect]
     Active Substance: PACLITAXEL
     Dosage: 40 MILLIGRAM/SQ. METER, TOTAL
     Dates: start: 20240328, end: 20240328
  5. CARBOPLATIN [Suspect]
     Active Substance: CARBOPLATIN
     Indication: Lung adenocarcinoma
     Dosage: UNK, TOTAL, AUC5
     Dates: start: 20240215, end: 20240215
  6. CARBOPLATIN [Suspect]
     Active Substance: CARBOPLATIN
     Dosage: 340 MILLIGRAM, AUC2 C1J1
     Dates: start: 20240315, end: 20240315
  7. CARBOPLATIN [Suspect]
     Active Substance: CARBOPLATIN
     Dosage: 300 MILLIGRAM, AUC2 C1J8
     Dates: start: 20240321, end: 20240321
  8. CARBOPLATIN [Suspect]
     Active Substance: CARBOPLATIN
     Dosage: 270 MILLIGRAM, AUC2 C1J15
     Dates: start: 20240328, end: 20240328
  9. KEYTRUDA [Suspect]
     Active Substance: PEMBROLIZUMAB
     Indication: Lung adenocarcinoma
     Dosage: 200 MILLIGRAM, TOTAL
     Dates: start: 20240215, end: 20240215
  10. AMITRIPTYLINE HYDROCHLORIDE [Concomitant]
     Active Substance: AMITRIPTYLINE HYDROCHLORIDE
     Indication: Product used for unknown indication
     Dosage: 5 GTT DROPS, QD, 5 DROPS IN THE EVENING
     Route: 061
     Dates: start: 20240208, end: 20240412
  11. Solupred [Concomitant]
     Indication: Product used for unknown indication
     Dosage: 40 MILLIGRAM, QD, 40 MG IN THE MORNING
     Dates: start: 20240208, end: 20240412
  12. LOXAPINE [Concomitant]
     Active Substance: LOXAPINE
     Indication: Psychotic disorder
     Dosage: 35 MILLIGRAM, QD, 25 MG/DAY + 10 MG AT NIGHT IF INSOMNIA
     Route: 061
     Dates: start: 20240221, end: 20240322
  13. LOXAPINE [Concomitant]
     Active Substance: LOXAPINE
     Dosage: 5 MILLIGRAM, PRN, 5 MG IF NEEDED
     Route: 061
  14. KETAMINE [Concomitant]
     Active Substance: KETAMINE
     Indication: Product used for unknown indication
     Dosage: 290 MILLIGRAM, PCA 290 MG
     Dates: start: 20240221, end: 20240412
  15. METHADONE [Concomitant]
     Active Substance: METHADONE HYDROCHLORIDE
     Indication: Cancer pain
     Dosage: UNK
     Dates: start: 20240221, end: 20240412
  16. APREPITANT [Concomitant]
     Active Substance: APREPITANT
     Indication: Prophylactic chemotherapy
     Dosage: 125 MILLIGRAM, TOTAL, 125 MG TOTAL, DAY 1 OF CHEMOTHERAPY
     Route: 061
     Dates: start: 20240315, end: 20240315
  17. APREPITANT [Concomitant]
     Active Substance: APREPITANT
     Dosage: 80 MILLIGRAM, QD, 80 MG ON DAYS 2 AND 3 POST-CHEMOTHERAPY
     Route: 061
     Dates: start: 20240316, end: 20240317
  18. ONDANSETRON [Concomitant]
     Active Substance: ONDANSETRON
     Indication: Prophylactic chemotherapy
     Dosage: 8 MILLIGRAM, BID, 8 MG MORNING AND EVENING ON DAY 1 OF CHEMOTHERAPY
     Route: 061
     Dates: start: 20240315, end: 20240315
  19. ALPRAZOLAM [Concomitant]
     Active Substance: ALPRAZOLAM
     Indication: Anxiety
     Dosage: 0.25 MILLIGRAM, PRN. 0.25 MG IF NEEDED
     Route: 061
  20. GABAPENTIN [Concomitant]
     Active Substance: GABAPENTIN
     Indication: Pain
     Dosage: 2700 MILLIGRAM, QD, 2700 MG/DAY
     Route: 061
     Dates: start: 20240129, end: 20240208
  21. GABAPENTIN [Concomitant]
     Active Substance: GABAPENTIN
     Dosage: 3600 MILLIGRAM, QD, 3600 MG/DAY
     Route: 061
     Dates: start: 20240208, end: 20240412
  22. GABAPENTIN [Concomitant]
     Active Substance: GABAPENTIN
     Dosage: 2700 MILLIGRAM, QD, 2700 MG/DAY
     Route: 061
     Dates: start: 20240412
  23. SKENAN [Concomitant]
     Active Substance: MORPHINE SULFATE
     Indication: Pain
     Dosage: 30 MG, BID, EXTENDED-RELEASE (ER) ONCE IN THE MORNING AND ONCE IN THE EVENING
     Route: 061
     Dates: start: 20240129, end: 20240412
  24. MORPHINE SULFATE [Concomitant]
     Active Substance: MORPHINE SULFATE
     Indication: Pain
     Dosage: 10 MILLIGRAM, Q4H, 10 MG EVERY 4 HOURS IF NEEDED
     Route: 061
     Dates: start: 20240129, end: 20240412
  25. ACETAMINOPHEN [Concomitant]
     Active Substance: ACETAMINOPHEN
     Indication: Pain
     Dosage: 1 GRAM, PRN, AS NEEDED
     Route: 061
     Dates: start: 20240129, end: 20240412
  26. ACETAMINOPHEN [Concomitant]
     Active Substance: ACETAMINOPHEN
     Dosage: 500 MILLIGRAM, PRN, AS NEEDED
     Route: 061
  27. METHADONE [Concomitant]
     Active Substance: METHADONE HYDROCHLORIDE
     Indication: Cancer pain
     Dosage: 15 MILLIGRAM, PRN
     Route: 061
  28. METHADONE [Concomitant]
     Active Substance: METHADONE HYDROCHLORIDE
     Dosage: 60 MILLIGRAM, QD, 60MG/DAY
     Route: 061
     Dates: start: 20240412
  29. METHADONE [Concomitant]
     Active Substance: METHADONE HYDROCHLORIDE
     Dosage: 30 MILLIGRAM, QD, 15 MG MORNING AND EVENING
     Route: 061
     Dates: start: 20240221, end: 20240412

REACTIONS (1)
  - Hepatic cytolysis [Recovered/Resolved]

NARRATIVE: CASE EVENT DATE: 20240305
